FAERS Safety Report 8951900 (Version 1)
Quarter: 2012Q4

REPORT INFORMATION
  Report Type: 
  Country: US (occurrence: US)
  Receive Date: 20121204
  Receipt Date: 20121204
  Transmission Date: 20130627
  Serious: No
  Sender: FDA-Public Use
  Company Number: US-AMGEN-USASP2012069759

PATIENT
  Age: 58 Year
  Sex: Female

DRUGS (3)
  1. ENBREL [Suspect]
     Indication: RHEUMATOID ARTHRITIS
     Dosage: UNK UNK, qwk
  2. FOSAMAX [Concomitant]
     Dosage: UNK
     Dates: end: 2012
  3. VITAMINS, OTHER COMBINATIONS [Concomitant]
     Dosage: UNK

REACTIONS (1)
  - Muscle injury [Unknown]
